FAERS Safety Report 20768701 (Version 2)
Quarter: 2022Q2

REPORT INFORMATION
  Report Type: Spontaneous
  Country: US (occurrence: US)
  Receive Date: 20220429
  Receipt Date: 20220613
  Transmission Date: 20220721
  Serious: Yes (Death, Other)
  Sender: FDA-Public Use
  Company Number: US-BEH-2022144450

PATIENT
  Age: 32 Year
  Sex: Male

DRUGS (1)
  1. ALBURX [Suspect]
     Active Substance: ALBUMIN HUMAN
     Indication: Plasmapheresis
     Route: 065

REACTIONS (4)
  - Transfusion-related acute lung injury [Fatal]
  - Neutrophilia [Fatal]
  - Haematocrit increased [Fatal]
  - Unevaluable event [Fatal]
